FAERS Safety Report 21918235 (Version 3)
Quarter: 2023Q2

REPORT INFORMATION
  Report Type: Spontaneous
  Country: CA (occurrence: CA)
  Receive Date: 20230127
  Receipt Date: 20230411
  Transmission Date: 20230722
  Serious: Yes (Hospitalization, Other)
  Sender: FDA-Public Use
  Company Number: CA-CELLTRION INC.-2023CA001894

PATIENT

DRUGS (3)
  1. INFLECTRA [Suspect]
     Active Substance: INFLIXIMAB-DYYB
     Indication: Crohn^s disease
     Dosage: 500 MG, FIRST DOSE IN HOSPITALW0, W2, W6 AND
     Route: 042
     Dates: start: 20230117
  2. INFLECTRA [Suspect]
     Active Substance: INFLIXIMAB-DYYB
     Dosage: 500 MG, FIRST DOSE IN HOSPITALW0, W2, W6 AND
     Route: 042
     Dates: start: 20230122
  3. PREDNISONE [Concomitant]
     Active Substance: PREDNISONE
     Dosage: 35 MG FREQUENCY: UNKNOWN
     Route: 065
     Dates: start: 20221101

REACTIONS (7)
  - Condition aggravated [Unknown]
  - Frequent bowel movements [Not Recovered/Not Resolved]
  - Pain [Not Recovered/Not Resolved]
  - Nausea [Not Recovered/Not Resolved]
  - Pyrexia [Unknown]
  - Inflammatory marker increased [Unknown]
  - Weight decreased [Unknown]

NARRATIVE: CASE EVENT DATE: 20230101
